FAERS Safety Report 11641066 (Version 1)
Quarter: 2015Q4

REPORT INFORMATION
  Report Type: Spontaneous
  Country: CN (occurrence: CN)
  Receive Date: 20151019
  Receipt Date: 20151019
  Transmission Date: 20160304
  Serious: Yes (Hospitalization)
  Sender: FDA-Public Use
  Company Number: CN-PFIZER INC-2015342303

PATIENT
  Age: 81 Year
  Sex: Male
  Weight: 58 kg

DRUGS (3)
  1. METHYLPREDNISOLONE SODIUM SUCCINATE. [Suspect]
     Active Substance: METHYLPREDNISOLONE SODIUM SUCCINATE
     Indication: BRONCHITIS
     Dosage: 40 MG, 2X/DAY
     Route: 042
     Dates: start: 20150428, end: 20150502
  2. CEFOXITIN SODIUM [Concomitant]
     Active Substance: CEFOXITIN SODIUM
     Indication: BRONCHITIS
     Dosage: 2 G, 2X/DAY
     Route: 042
     Dates: start: 20150427, end: 20150505
  3. PREDNISOLONE ACETATE. [Suspect]
     Active Substance: PREDNISOLONE ACETATE
     Indication: BRONCHITIS
     Dosage: 10 MG, 1X/DAY
     Route: 048
     Dates: start: 20150430, end: 20150505

REACTIONS (1)
  - White blood cell count increased [Recovering/Resolving]

NARRATIVE: CASE EVENT DATE: 20150428
